FAERS Safety Report 8960528 (Version 2)
Quarter: 2013Q1

REPORT INFORMATION
  Report Type: Spontaneous
  Country: FR (occurrence: None)
  Receive Date: 20121203
  Receipt Date: 20130304
  Transmission Date: 20140127
  Serious: Yes (Hospitalization)
  Sender: FDA-Public Use
  Company Number: 2012FR0322

PATIENT
  Age: 78 Year
  Sex: Female

DRUGS (7)
  1. KINERET [Suspect]
     Indication: AUTOIMMUNE DISORDER
     Dosage: (1 IN 1D)
     Route: 058
     Dates: start: 201112, end: 201209
  2. KINERET [Suspect]
     Indication: TUMOUR NECROSIS FACTOR RECEPTOR-ASSOCIATED PERIODIC SYNDROME
     Dosage: (1 IN 1D)
     Route: 058
     Dates: start: 201112, end: 201209
  3. CORTANCYL [Suspect]
     Dosage: (10 MG, 1 IN 1 D)
     Route: 048
  4. ROACTEMRA [Suspect]
     Dosage: 16 MG (480 MG, 1 IN 1 M)
     Route: 042
     Dates: start: 201003, end: 201005
  5. SOLUMEDROL(METHYLPREDNISOLONE SODIUM SUCCINATE) INFUSION [Suspect]
     Route: 042
     Dates: start: 2011, end: 2011
  6. AERIUS (DESLORATADINE) (TABLETS) [Concomitant]
  7. DAFALGAN (PARACETAMOL) [Concomitant]

REACTIONS (7)
  - Pulmonary tuberculosis [None]
  - Lymph node tuberculosis [None]
  - CD4 lymphocytes decreased [None]
  - Seborrhoeic keratosis [None]
  - Pruritus [None]
  - Drug ineffective for unapproved indication [None]
  - Pneumonia chlamydial [None]
